FAERS Safety Report 20889228 (Version 1)
Quarter: 2022Q2

REPORT INFORMATION
  Report Type: Report from Study
  Country: US (occurrence: US)
  Receive Date: 20220530
  Receipt Date: 20220530
  Transmission Date: 20220721
  Serious: No
  Sender: FDA-Public Use
  Company Number: US-ACADIA PHARMACEUTICALS INC.-ACA-2022-PIM-001597

PATIENT
  Age: 90 Year
  Sex: Male

DRUGS (2)
  1. NUPLAZID [Suspect]
     Active Substance: PIMAVANSERIN TARTRATE
     Indication: Parkinson^s disease psychosis
     Dosage: UNK
     Dates: start: 2021
  2. QUETIAPINE [Suspect]
     Active Substance: QUETIAPINE
     Dosage: UNK

REACTIONS (1)
  - Hallucination, visual [Not Recovered/Not Resolved]
